FAERS Safety Report 5575706-1 (Version None)
Quarter: 2007Q4

REPORT INFORMATION
  Report Type: 
  Country: None (occurrence: None)
  Receive Date: 20071226
  Receipt Date: 20071210
  Transmission Date: 20080405
  Serious: Yes (Life-Threatening)
  Sender: FDA-Public Use
  Company Number: ADE2007-0069

PATIENT
  Age: 75 Year
  Sex: Male

DRUGS (1)
  1. CITALOPRAM HYDROBROMIDE [Suspect]
     Indication: DEPRESSION
     Dosage: 10MGQD - PO
     Route: 048
     Dates: start: 20070921, end: 20071003

REACTIONS (3)
  - DIZZINESS [None]
  - FALL [None]
  - SINUS BRADYCARDIA [None]
